FAERS Safety Report 5488568-8 (Version None)
Quarter: 2007Q3

REPORT INFORMATION
  Report Type: 
  Country: None (occurrence: None)
  Receive Date: 20070925
  Receipt Date: 20070719
  Transmission Date: 20080115
  Serious: No
  Sender: FDA-Public Use
  Company Number: 2007US001687

PATIENT
  Age: 70 Year
  Sex: Female
  Weight: 78 kg

DRUGS (2)
  1. VESICARE [Suspect]
     Indication: POLLAKIURIA
     Dates: start: 20070101, end: 20070101
  2. VESICARE [Suspect]
     Indication: POLLAKIURIA
     Dates: start: 20070501, end: 20070101

REACTIONS (3)
  - MICTURITION URGENCY [None]
  - MUSCLE SPASMS [None]
  - URINARY TRACT INFECTION [None]
